FAERS Safety Report 12341887 (Version 3)
Quarter: 2017Q3

REPORT INFORMATION
  Report Type: Spontaneous
  Country: US (occurrence: US)
  Receive Date: 20160506
  Receipt Date: 20170824
  Transmission Date: 20171127
  Serious: No
  Sender: FDA-Public Use
  Company Number: US-ACTELION-A-US2016-135622

PATIENT
  Age: 31 Year
  Sex: Female
  Weight: 81.63 kg

DRUGS (4)
  1. WARFARIN [Concomitant]
     Active Substance: WARFARIN
  2. OPSUMIT [Suspect]
     Active Substance: MACITENTAN
     Indication: PULMONARY ARTERIAL HYPERTENSION
     Dosage: 10 MG, QD
     Route: 048
     Dates: start: 20150609
  3. REMODULIN [Suspect]
     Active Substance: TREPROSTINIL
     Indication: PRODUCT USED FOR UNKNOWN INDICATION
     Route: 065
  4. ADCIRCA [Concomitant]
     Active Substance: TADALAFIL

REACTIONS (9)
  - Muscle tightness [Unknown]
  - Chest discomfort [Unknown]
  - Device leakage [Unknown]
  - Headache [Unknown]
  - Dyspnoea [Unknown]
  - Device dislocation [Unknown]
  - Asthenia [Unknown]
  - Fluid retention [Not Recovered/Not Resolved]
  - Brain natriuretic peptide increased [Unknown]
